FAERS Safety Report 12450780 (Version 1)
Quarter: 2016Q2

REPORT INFORMATION
  Report Type: Spontaneous
  Country: US (occurrence: US)
  Receive Date: 20160609
  Receipt Date: 20160609
  Transmission Date: 20160815
  Serious: No
  Sender: FDA-Public Use
  Company Number: US-PERRIGO-16US000928

PATIENT
  Age: 14 Year
  Sex: Male
  Weight: 58.96 kg

DRUGS (1)
  1. PERMETHRIN. [Suspect]
     Active Substance: PERMETHRIN
     Indication: ACARODERMATITIS
     Dosage: ONE TREATMENT, SINGLE
     Route: 061
     Dates: start: 20160128, end: 20160128

REACTIONS (2)
  - Application site papules [Recovering/Resolving]
  - Application site erythema [Recovering/Resolving]

NARRATIVE: CASE EVENT DATE: 20160129
